FAERS Safety Report 12373221 (Version 17)
Quarter: 2017Q1

REPORT INFORMATION
  Report Type: Report from Study
  Country: CA (occurrence: CA)
  Receive Date: 20160516
  Receipt Date: 20170120
  Transmission Date: 20170428
  Serious: Yes (Hospitalization, Other)
  Sender: FDA-Public Use
  Company Number: CA-SA-2016SA034118

PATIENT
  Age: 46 Year
  Sex: Female

DRUGS (20)
  1. REACTINE [Concomitant]
     Active Substance: CETIRIZINE HYDROCHLORIDE
     Indication: PREMEDICATION
     Route: 048
     Dates: start: 20160215
  2. SOLU-MEDROL [Concomitant]
     Active Substance: METHYLPREDNISOLONE SODIUM SUCCINATE
     Indication: PREMEDICATION
     Dosage: DOSE:19 (UNITS: NOT PROVIDED)
     Route: 042
     Dates: start: 20160215, end: 20160223
  3. D-GEL [Concomitant]
     Indication: MULTIPLE SCLEROSIS
     Dosage: D GEL, 1000 IU, CAPSULE (80007766); TAKE 2 CAPSULES ONCE A DAY AT BREAKFAST ?(VITAMIN)
  4. D-GEL [Concomitant]
     Indication: MULTIPLE SCLEROSIS
     Route: 048
  5. VENLAFAXINE [Concomitant]
     Active Substance: VENLAFAXINE HYDROCHLORIDE
     Indication: AFFECTIVE DISORDER
     Dosage: CAPSULE-24H (02275058) TAKE 1 CAPSULE PER DAY WITH DL: BREAKFAST ?REGULARLY (MOOD)
     Route: 048
  6. LEMTRADA [Suspect]
     Active Substance: ALEMTUZUMAB
     Indication: RELAPSING-REMITTING MULTIPLE SCLEROSIS
     Route: 041
     Dates: start: 20160215, end: 20160217
  7. MYRBETRIQ [Concomitant]
     Active Substance: MIRABEGRON
     Indication: BLADDER DISORDER
     Dosage: (02402882); REGULARLY (BLADDER)
     Route: 048
  8. CALCIUM [Concomitant]
     Active Substance: CALCIUM
     Indication: OSTEOPOROSIS
     Route: 048
  9. COPAXONE [Concomitant]
     Active Substance: GLATIRAMER ACETATE
     Dosage: UNITARY INJECTION (02245619) 20 MG (1ML) SUB-CUTANEOUS INJECTION ONCE A DAY SN CODE 134
  10. RANITIDINE. [Concomitant]
     Active Substance: RANITIDINE
     Indication: PREMEDICATION
     Route: 048
     Dates: start: 20160214, end: 20160223
  11. D-GEL [Concomitant]
     Indication: SUPPLEMENTATION THERAPY
     Route: 048
  12. PANTOPRAZOLE [Concomitant]
     Active Substance: PANTOPRAZOLE SODIUM
     Indication: ABDOMINAL DISCOMFORT
     Dosage: ENT TABLET (02316463) TAKE 1 TABLET TWICE A DAY IN MORNING AND EVENING (STOMACH)
     Route: 048
  13. CALCIUM [Concomitant]
     Active Substance: CALCIUM
     Indication: SUPPLEMENTATION THERAPY
     Route: 048
  14. ACYCLOVIR. [Concomitant]
     Active Substance: ACYCLOVIR
     Indication: PREMEDICATION
     Route: 048
     Dates: start: 20160215
  15. REACTINE [Concomitant]
     Active Substance: CETIRIZINE HYDROCHLORIDE
     Indication: PREMEDICATION
     Route: 048
     Dates: start: 20160214, end: 20160223
  16. LEMTRADA [Suspect]
     Active Substance: ALEMTUZUMAB
     Indication: RELAPSING-REMITTING MULTIPLE SCLEROSIS
     Route: 041
     Dates: start: 20160222, end: 20160223
  17. MYRBETRIQ [Concomitant]
     Active Substance: MIRABEGRON
     Indication: MICTURITION URGENCY
     Dosage: (02402882); REGULARLY (BLADDER)
     Route: 048
  18. RIZATRIPTAN. [Concomitant]
     Active Substance: RIZATRIPTAN
     Indication: MIGRAINE
     Route: 048
  19. ENTOCORT [Concomitant]
     Active Substance: BUDESONIDE
     Indication: CROHN^S DISEASE
     Dosage: 3 MG, ENT CAPSULE (02229293) TAKE 1 CAPSULE PER DAY WITH DL: BREAKFAST
     Route: 048
  20. D-GEL [Concomitant]
     Indication: SUPPLEMENTATION THERAPY
     Dosage: D GEL, 1000 IU, CAPSULE (80007766); TAKE 2 CAPSULES ONCE A DAY AT BREAKFAST ?(VITAMIN)

REACTIONS (49)
  - Streptococcal urinary tract infection [Recovered/Resolved]
  - Decreased appetite [Recovering/Resolving]
  - Urine phosphorus increased [Unknown]
  - Blood urine present [Not Recovered/Not Resolved]
  - Dysphagia [Not Recovered/Not Resolved]
  - Abdominal pain [Unknown]
  - Lymphocyte percentage decreased [Not Recovered/Not Resolved]
  - Generalised erythema [Recovered/Resolved]
  - Pyrexia [Recovered/Resolved]
  - Weight increased [Not Recovered/Not Resolved]
  - Insomnia [Recovering/Resolving]
  - Musculoskeletal disorder [Recovered/Resolved]
  - Mobility decreased [Recovering/Resolving]
  - Pruritus [Not Recovered/Not Resolved]
  - Multiple sclerosis relapse [Recovered/Resolved]
  - Speech disorder [Not Recovered/Not Resolved]
  - Leukocyturia [Recovered/Resolved]
  - Urinary sediment present [Not Recovered/Not Resolved]
  - Rash [Not Recovered/Not Resolved]
  - Fatigue [Unknown]
  - Chest pain [Recovering/Resolving]
  - Throat irritation [Recovering/Resolving]
  - Skin lesion [Recovered/Resolved]
  - Metamorphopsia [Recovering/Resolving]
  - Urine leukocyte esterase positive [Not Recovered/Not Resolved]
  - Urine analysis abnormal [Not Recovered/Not Resolved]
  - Back pain [Recovering/Resolving]
  - Headache [Recovering/Resolving]
  - Gastrooesophageal reflux disease [Not Recovered/Not Resolved]
  - Nausea [Recovering/Resolving]
  - Urine abnormality [Recovered/Resolved]
  - Lymphocyte count decreased [Not Recovered/Not Resolved]
  - Pain [Recovering/Resolving]
  - Oropharyngeal pain [Recovering/Resolving]
  - Neutrophil percentage increased [Not Recovered/Not Resolved]
  - Gait disturbance [Not Recovered/Not Resolved]
  - Vision blurred [Recovering/Resolving]
  - Alanine aminotransferase increased [Unknown]
  - Chest discomfort [Recovering/Resolving]
  - Hypotension [Recovering/Resolving]
  - Sinusitis [Recovered/Resolved]
  - Muscle spasms [Not Recovered/Not Resolved]
  - Asthma [Not Recovered/Not Resolved]
  - Volvulus [Recovering/Resolving]
  - Streptococcus test positive [Recovered/Resolved]
  - Urine oxalate increased [Not Recovered/Not Resolved]
  - Muscular weakness [Not Recovered/Not Resolved]
  - Bronchitis [Recovered/Resolved]
  - Increased bronchial secretion [Recovering/Resolving]

NARRATIVE: CASE EVENT DATE: 2016
